FAERS Safety Report 11132432 (Version 5)
Quarter: 2015Q3

REPORT INFORMATION
  Report Type: Report from Study
  Country: JP (occurrence: JP)
  Receive Date: 20150522
  Receipt Date: 20150928
  Transmission Date: 20151125
  Serious: Yes (Hospitalization, Other)
  Sender: FDA-Public Use
  Company Number: JP-BRISTOL-MYERS SQUIBB COMPANY-BMS-2015-031299

PATIENT
  Age: 74 Year
  Sex: Female
  Weight: 61 kg

DRUGS (3)
  1. PREMINENT [Concomitant]
     Active Substance: HYDROCHLOROTHIAZIDE\LOSARTAN POTASSIUM
     Indication: THROMBOSIS PROPHYLAXIS
     Dosage: UNK
     Route: 048
  2. APIXABAN [Suspect]
     Active Substance: APIXABAN
     Indication: THROMBOSIS PROPHYLAXIS
     Dosage: 2.5 MG, BID
     Route: 048
     Dates: start: 20140327, end: 20140430
  3. APIXABAN [Suspect]
     Active Substance: APIXABAN
     Dosage: 2.5 MG, BID
     Route: 048
     Dates: start: 20140508

REACTIONS (4)
  - Anaemia [Unknown]
  - Transfusion [Unknown]
  - Genital haemorrhage [Recovering/Resolving]
  - Hysterosalpingo-oophorectomy [Unknown]

NARRATIVE: CASE EVENT DATE: 20140408
